FAERS Safety Report 17743965 (Version 4)
Quarter: 2020Q2

REPORT INFORMATION
  Report Type: Report from Study
  Country: FR (occurrence: FR)
  Receive Date: 20200505
  Receipt Date: 20200626
  Transmission Date: 20200714
  Serious: Yes (Hospitalization)
  Sender: FDA-Public Use
  Company Number: FR-ROCHE-2587123

PATIENT
  Age: 51 Year
  Sex: Male
  Weight: 94 kg

DRUGS (54)
  1. CEFTRIAXONE. [Concomitant]
     Active Substance: CEFTRIAXONE
     Route: 065
     Dates: start: 20200407, end: 20200407
  2. SPIRAMYCIN [Concomitant]
     Active Substance: SPIRAMYCIN
     Dosage: DOSE: 1.5 (OTHER)
     Route: 065
     Dates: start: 20200406, end: 20200408
  3. RITONAVIR. [Concomitant]
     Active Substance: RITONAVIR
     Indication: CORONAVIRUS INFECTION
     Route: 065
     Dates: start: 20200407, end: 20200420
  4. NOREPINEPHRINE. [Concomitant]
     Active Substance: NOREPINEPHRINE
     Route: 065
     Dates: start: 20200410, end: 20200410
  5. NOREPINEPHRINE. [Concomitant]
     Active Substance: NOREPINEPHRINE
     Route: 065
     Dates: start: 20200416, end: 20200416
  6. PROPOFOL. [Concomitant]
     Active Substance: PROPOFOL
     Indication: SEDATION
     Route: 065
     Dates: start: 20200416, end: 20200416
  7. NUTRYELT [Concomitant]
     Active Substance: IRON\MINERALS\POTASSIUM IOD\SODIUM FLUORIDE\SODIUM MOLYBDATE\SODIUM SELENITE\ZINC
     Route: 065
     Dates: start: 20200422, end: 20200425
  8. CEFTRIAXONE. [Concomitant]
     Active Substance: CEFTRIAXONE
     Route: 065
     Dates: start: 20200408, end: 20200409
  9. MIDAZOLAM. [Concomitant]
     Active Substance: MIDAZOLAM
     Indication: SEDATION
     Route: 065
     Dates: start: 20200406, end: 20200430
  10. SUFENTANIL [Concomitant]
     Active Substance: SUFENTANIL
     Indication: SEDATION
     Route: 065
     Dates: start: 20200406, end: 20200430
  11. POTASSIUM TARTRATE;SODIUM BICARBONATE [Concomitant]
     Indication: CONSTIPATION
     Route: 065
     Dates: start: 20200429, end: 20200429
  12. OXAZEPAM. [Concomitant]
     Active Substance: OXAZEPAM
     Route: 065
     Dates: start: 20200501, end: 20200501
  13. PARACETAMOL [Concomitant]
     Active Substance: ACETAMINOPHEN
     Indication: HYPERTHERMIA
     Route: 065
     Dates: start: 20200406, end: 20200410
  14. ESOMEPRAZOLE. [Concomitant]
     Active Substance: ESOMEPRAZOLE MAGNESIUM
     Route: 065
     Dates: start: 20200406, end: 20200503
  15. NOREPINEPHRINE. [Concomitant]
     Active Substance: NOREPINEPHRINE
     Indication: HYPOTENSION
     Route: 065
     Dates: start: 20200409, end: 20200409
  16. NOREPINEPHRINE. [Concomitant]
     Active Substance: NOREPINEPHRINE
     Route: 065
     Dates: start: 20200417, end: 20200418
  17. PROPOFOL. [Concomitant]
     Active Substance: PROPOFOL
     Indication: CONSTIPATION
     Route: 065
     Dates: start: 20200419, end: 20200419
  18. B1 VITAMIN [Concomitant]
     Route: 065
     Dates: start: 20200406, end: 20200417
  19. URAPIDIL [Concomitant]
     Active Substance: URAPIDIL
     Indication: HYPERTENSION
     Route: 065
     Dates: start: 20200429, end: 20200503
  20. TOCILIZUMAB. [Suspect]
     Active Substance: TOCILIZUMAB
     Indication: COVID-19 PNEUMONIA
     Dosage: DATE OF MOST RECENT DOSE AT 11: 15 HR PRIOR TO SAE ONSET: 11/APR/2020.
     Route: 042
     Dates: start: 20200411
  21. CISATRACURIUM. [Concomitant]
     Active Substance: CISATRACURIUM
     Route: 065
     Dates: start: 20200416, end: 20200416
  22. NOREPINEPHRINE. [Concomitant]
     Active Substance: NOREPINEPHRINE
     Indication: SEPTIC SHOCK
     Route: 065
     Dates: start: 20200408, end: 20200408
  23. DEXMEDETOMIDINE. [Concomitant]
     Active Substance: DEXMEDETOMIDINE
     Route: 065
     Dates: start: 20200420, end: 20200422
  24. SODIUM CHLORIDE 0.9% [Concomitant]
     Active Substance: SODIUM CHLORIDE
     Route: 065
     Dates: start: 20200416, end: 20200426
  25. AMLODIPINE [Concomitant]
     Active Substance: AMLODIPINE BESYLATE
     Indication: HYPERTENSION
     Route: 065
     Dates: start: 20200501, end: 20200504
  26. OXAZEPAM. [Concomitant]
     Active Substance: OXAZEPAM
     Indication: PROPHYLAXIS
     Route: 065
     Dates: start: 20200430
  27. ETOMIDATE. [Concomitant]
     Active Substance: ETOMIDATE
     Indication: SEDATION
     Route: 065
     Dates: start: 20200406, end: 20200406
  28. POTASSIUM CHLORIDE. [Concomitant]
     Active Substance: POTASSIUM CHLORIDE
     Route: 065
     Dates: start: 20200414, end: 20200414
  29. FUROSEMIDE. [Concomitant]
     Active Substance: FUROSEMIDE
     Indication: HYPERTENSION
     Route: 065
     Dates: start: 20200415, end: 20200416
  30. INSULIN [Concomitant]
     Active Substance: INSULIN NOS
     Indication: HYPERGLYCAEMIA
     Route: 065
     Dates: start: 20200408, end: 20200504
  31. POLYSTYRENE SULFONATE SODIUM [Concomitant]
     Active Substance: SODIUM POLYSTYRENE SULFONATE
     Route: 065
     Dates: start: 20200429, end: 20200430
  32. CISATRACURIUM. [Concomitant]
     Active Substance: CISATRACURIUM
     Indication: SEDATION
     Dosage: DOSE: 20 (OTHER)
     Route: 065
     Dates: start: 20200406, end: 20200407
  33. MIDAZOLAM. [Concomitant]
     Active Substance: MIDAZOLAM
     Route: 065
     Dates: start: 20200426, end: 20200429
  34. SUXAMETHONIUM [Concomitant]
     Active Substance: SUCCINYLCHOLINE
     Indication: SEDATION
     Route: 065
     Dates: start: 20200406, end: 20200406
  35. NOREPINEPHRINE. [Concomitant]
     Active Substance: NOREPINEPHRINE
     Route: 065
     Dates: start: 20200411, end: 20200411
  36. AMOXICILLIN;CLAVULANIC ACID [Concomitant]
     Active Substance: AMOXICILLIN\CLAVULANIC ACID
     Route: 065
     Dates: start: 20200401, end: 20200406
  37. DEXMEDETOMIDINE. [Concomitant]
     Active Substance: DEXMEDETOMIDINE
     Indication: SEDATION
     Route: 065
     Dates: start: 20200414, end: 20200416
  38. GLUCOSE [Concomitant]
     Active Substance: DEXTROSE
     Route: 065
     Dates: start: 20200430, end: 20200502
  39. PARACETAMOL [Concomitant]
     Active Substance: ACETAMINOPHEN
     Route: 065
     Dates: start: 20200407, end: 20200429
  40. HEPARINE [HEPARIN] [Concomitant]
     Active Substance: HEPARIN SODIUM
     Indication: THROMBOSIS PROPHYLAXIS
     Route: 065
     Dates: start: 20200406, end: 20200502
  41. CEFTRIAXONE. [Concomitant]
     Active Substance: CEFTRIAXONE
     Route: 065
     Dates: start: 20200406, end: 20200406
  42. NOREPINEPHRINE. [Concomitant]
     Active Substance: NOREPINEPHRINE
     Indication: CORONAVIRUS INFECTION
     Route: 065
     Dates: start: 20200407, end: 20200407
  43. LEVOMEPROMAZINE [Concomitant]
     Active Substance: LEVOMEPROMAZINE
     Indication: SEDATION
     Route: 065
     Dates: start: 20200422, end: 20200427
  44. SODIUM CHLORIDE 0.9% [Concomitant]
     Active Substance: SODIUM CHLORIDE
     Indication: HYPOTENSION
     Route: 065
     Dates: start: 20200424, end: 20200424
  45. GLUCOSE [Concomitant]
     Active Substance: DEXTROSE
     Route: 065
     Dates: start: 20200406, end: 20200430
  46. LOPINAVIR [Concomitant]
     Active Substance: LOPINAVIR
     Indication: CORONAVIRUS INFECTION
     Route: 065
     Dates: start: 20200407, end: 20200420
  47. NOREPINEPHRINE. [Concomitant]
     Active Substance: NOREPINEPHRINE
     Route: 065
     Dates: start: 20200424, end: 20200425
  48. POTASSIUM CHLORIDE. [Concomitant]
     Active Substance: POTASSIUM CHLORIDE
     Route: 065
     Dates: start: 20200410, end: 20200415
  49. PROPOFOL. [Concomitant]
     Active Substance: PROPOFOL
     Route: 065
     Dates: start: 20200422, end: 20200428
  50. PROPOFOL. [Concomitant]
     Active Substance: PROPOFOL
     Route: 065
     Dates: start: 20200429, end: 20200429
  51. RINGER LACTATED [Concomitant]
     Indication: SEPTIC SHOCK
     Route: 065
     Dates: start: 20200416, end: 20200416
  52. POLYSTYRENE SULFONATE SODIUM [Concomitant]
     Active Substance: SODIUM POLYSTYRENE SULFONATE
     Indication: HYPERKALAEMIA
     Route: 065
     Dates: start: 20200427, end: 20200428
  53. B1 VITAMIN [Concomitant]
     Route: 065
     Dates: start: 20200420, end: 20200504
  54. SODIUM CHLORIDE 0.9% [Concomitant]
     Active Substance: SODIUM CHLORIDE
     Route: 065
     Dates: start: 20200415, end: 20200415

REACTIONS (1)
  - Pneumonia bacterial [Recovered/Resolved]

NARRATIVE: CASE EVENT DATE: 20200423
